FAERS Safety Report 6725993-9 (Version None)
Quarter: 2010Q2

REPORT INFORMATION
  Report Type: 
  Country: None (occurrence: None)
  Receive Date: 20100514
  Receipt Date: 20100511
  Transmission Date: 20101027
  Serious: Yes (Hospitalization, Other)
  Sender: FDA-Public Use
  Company Number: US-ELI_LILLY_AND_COMPANY-US201005002923

PATIENT
  Age: 62 Year
  Sex: Male

DRUGS (3)
  1. HUMULIN N [Suspect]
     Dosage: 8 U, 2/D
     Dates: start: 20091103
  2. METFORMIN HYDROCHLORIDE [Concomitant]
     Dosage: 500 MG, 2/D
  3. COUMADIN [Concomitant]

REACTIONS (4)
  - CARDIAC FAILURE CONGESTIVE [None]
  - CARDIAC PACEMAKER INSERTION [None]
  - HOSPITALISATION [None]
  - IMPLANTABLE DEFIBRILLATOR INSERTION [None]
